FAERS Safety Report 7030397-8 (Version None)
Quarter: 2010Q4

REPORT INFORMATION
  Report Type: 
  Country: None (occurrence: None)
  Receive Date: 20101006
  Receipt Date: 20100927
  Transmission Date: 20110411
  Serious: Yes (Hospitalization)
  Sender: FDA-Public Use
  Company Number: US-ASTRAZENECA-2010SE36567

PATIENT
  Age: 9 Year
  Sex: Male
  Weight: 28.1 kg

DRUGS (16)
  1. SEROQUEL XR [Suspect]
     Indication: BIPOLAR DISORDER
     Route: 048
     Dates: start: 20100618, end: 20100823
  2. SEROQUEL XR [Suspect]
     Indication: DEPRESSION
     Route: 048
     Dates: start: 20100618, end: 20100823
  3. SEROQUEL XR [Suspect]
     Indication: PSYCHOTIC DISORDER
     Route: 048
     Dates: start: 20100618, end: 20100823
  4. SEROQUEL XR [Suspect]
     Indication: ANXIETY
     Route: 048
     Dates: start: 20100618, end: 20100823
  5. SEROQUEL XR [Suspect]
     Indication: TIC
     Route: 048
     Dates: start: 20100618, end: 20100823
  6. SEROQUEL XR [Suspect]
     Route: 048
     Dates: start: 20100823
  7. SEROQUEL XR [Suspect]
     Route: 048
     Dates: start: 20100823
  8. SEROQUEL XR [Suspect]
     Route: 048
     Dates: start: 20100823
  9. SEROQUEL XR [Suspect]
     Route: 048
     Dates: start: 20100823
  10. SEROQUEL XR [Suspect]
     Route: 048
     Dates: start: 20100823
  11. LEXAPRO [Concomitant]
     Indication: OBSESSIVE-COMPULSIVE DISORDER
     Dates: start: 20100616
  12. LAMICTAL [Concomitant]
     Indication: DEPRESSION
     Dates: start: 20090609
  13. ZYPREXA ZYDIS [Concomitant]
     Indication: ANXIETY
     Dates: start: 20100610, end: 20100618
  14. ZYPREXA ZYDIS [Concomitant]
     Indication: DELUSION
     Dates: start: 20100610, end: 20100618
  15. ZYPREXA ZYDIS [Concomitant]
     Dates: start: 20100610, end: 20100618
  16. ZYPREXA ZYDIS [Concomitant]
     Dates: start: 20100610, end: 20100618

REACTIONS (4)
  - JAW DISORDER [None]
  - THROAT IRRITATION [None]
  - TIC [None]
  - TREMOR [None]
